FAERS Safety Report 8369642-5 (Version None)
Quarter: 2012Q2

REPORT INFORMATION
  Report Type: 
  Country: None (occurrence: None)
  Receive Date: 20120518
  Receipt Date: 20120503
  Transmission Date: 20120825
  Serious: Yes (Death, Life-Threatening, Hospitalization, Other)
  Sender: FDA-Public Use
  Company Number: US-MYLANLABS-2009AC000133

PATIENT
  Sex: Male
  Weight: 57.61 kg

DRUGS (36)
  1. DIAMOX [Concomitant]
  2. DIGOXIN [Suspect]
     Indication: CARDIAC FAILURE CONGESTIVE
     Route: 048
     Dates: start: 20071112, end: 20080220
  3. IMDUR [Concomitant]
  4. FLAGYL [Concomitant]
  5. VANCOMYCIN [Concomitant]
  6. ZITHROMAX [Concomitant]
  7. SOLU-MEDROL [Concomitant]
  8. ROCEPHIN [Concomitant]
  9. LOPRESSOR [Concomitant]
  10. LEVOPHED [Concomitant]
  11. PLAVIX [Concomitant]
  12. PRED FORTE [Concomitant]
     Route: 031
  13. SINGULAIR [Concomitant]
  14. ADVAIR DISKUS 100/50 [Concomitant]
  15. ASPIRIN [Concomitant]
  16. LASIX [Concomitant]
  17. CEFTIN [Concomitant]
  18. PRILOSEC [Concomitant]
  19. LEVAQUIN [Concomitant]
  20. SPIRIVA [Concomitant]
  21. METOPROLOL [Concomitant]
  22. LOVENOX [Concomitant]
  23. PRILOSEC [Concomitant]
  24. PREDNISONE [Concomitant]
  25. XOPENEX [Concomitant]
  26. POTASSIUM CHLORIDE [Concomitant]
  27. DECADRON [Concomitant]
  28. SOTALOL HCL [Concomitant]
  29. OXYGEN [Concomitant]
  30. ALBUTEROL [Concomitant]
  31. ZOCOR [Concomitant]
  32. XANAX [Concomitant]
  33. LISINOPRIL [Concomitant]
  34. IMDUR [Concomitant]
  35. PROTONIX [Concomitant]
  36. ATROVENT [Concomitant]

REACTIONS (84)
  - PAIN [None]
  - ENDOTRACHEAL INTUBATION [None]
  - HYPERLIPIDAEMIA [None]
  - HYPOXIA [None]
  - COUGH [None]
  - DECREASED APPETITE [None]
  - CREPITATIONS [None]
  - CORONARY ARTERY DISEASE [None]
  - CHRONIC OBSTRUCTIVE PULMONARY DISEASE [None]
  - ASCITES [None]
  - RALES [None]
  - INJURY [None]
  - CARDIO-RESPIRATORY ARREST [None]
  - RESPIRATORY FAILURE [None]
  - HYPERTENSION [None]
  - ASTHENIA [None]
  - ISCHAEMIA [None]
  - ATRIAL FIBRILLATION [None]
  - WHEEZING [None]
  - GENERAL PHYSICAL HEALTH DETERIORATION [None]
  - SOCIAL AVOIDANT BEHAVIOUR [None]
  - ENDOTRACHEAL INTUBATION COMPLICATION [None]
  - HYPOTENSION [None]
  - CHEST PAIN [None]
  - CORONARY ARTERY OCCLUSION [None]
  - ECCHYMOSIS [None]
  - TREMOR [None]
  - RHINITIS [None]
  - PNEUMONIA [None]
  - ECHOCARDIOGRAM ABNORMAL [None]
  - LEUKOCYTOSIS [None]
  - FATIGUE [None]
  - MECHANICAL VENTILATION [None]
  - CLOSTRIDIUM DIFFICILE COLITIS [None]
  - PYREXIA [None]
  - TROPONIN INCREASED [None]
  - ILL-DEFINED DISORDER [None]
  - DEATH [None]
  - ELECTROCARDIOGRAM ABNORMAL [None]
  - BLOOD MAGNESIUM DECREASED [None]
  - HAEMOGLOBIN DECREASED [None]
  - PLATELET COUNT DECREASED [None]
  - ERYTHEMA [None]
  - DYSPNOEA [None]
  - HAEMOPTYSIS [None]
  - HEADACHE [None]
  - EMPHYSEMA [None]
  - ANAEMIA [None]
  - CHEST DISCOMFORT [None]
  - NAUSEA [None]
  - PULMONARY CONGESTION [None]
  - SINUS TACHYCARDIA [None]
  - SUPRAVENTRICULAR EXTRASYSTOLES [None]
  - VOMITING [None]
  - EMOTIONAL DISTRESS [None]
  - LOSS OF EMPLOYMENT [None]
  - CATHETERISATION CARDIAC ABNORMAL [None]
  - SWELLING FACE [None]
  - OEDEMA PERIPHERAL [None]
  - PERIPHERAL VASCULAR DISORDER [None]
  - BREATH SOUNDS ABNORMAL [None]
  - FLATULENCE [None]
  - OXYGEN SATURATION DECREASED [None]
  - CHEST X-RAY ABNORMAL [None]
  - CATHETERISATION CARDIAC [None]
  - MITRAL VALVE INCOMPETENCE [None]
  - BRONCHITIS [None]
  - MYOCARDIAL INFARCTION [None]
  - ARRHYTHMIA SUPRAVENTRICULAR [None]
  - UNRESPONSIVE TO STIMULI [None]
  - ABDOMINAL PAIN [None]
  - DYSLIPIDAEMIA [None]
  - THROMBOCYTOPENIA [None]
  - ECONOMIC PROBLEM [None]
  - BRAIN NATRIURETIC PEPTIDE INCREASED [None]
  - TRICUSPID VALVE INCOMPETENCE [None]
  - PRODUCTIVE COUGH [None]
  - TACHYCARDIA [None]
  - HYPOVOLAEMIC SHOCK [None]
  - RESUSCITATION [None]
  - CARDIAC MURMUR [None]
  - CHILLS [None]
  - COLITIS [None]
  - DIARRHOEA [None]
